FAERS Safety Report 4552965-5 (Version None)
Quarter: 2005Q1

REPORT INFORMATION
  Report Type: 
  Country: None (occurrence: None)
  Receive Date: 20050111
  Receipt Date: 20050111
  Transmission Date: 20050727
  Serious: Yes (Life-Threatening, Hospitalization)
  Sender: FDA-Public Use
  Company Number: None

PATIENT
  Age: 35 Year
  Sex: Female
  Weight: 69 kg

DRUGS (5)
  1. CITALOPRAM [Suspect]
     Indication: DEPRESSION
     Dosage: 20MG PO DAILY
     Route: 048
  2. NORVASC [Concomitant]
  3. LASIX [Concomitant]
  4. KCL TAB [Concomitant]
  5. ACCUPRIL [Concomitant]

REACTIONS (5)
  - CHEST PAIN [None]
  - NAUSEA [None]
  - RHABDOMYOLYSIS [None]
  - TREMOR [None]
  - VOMITING [None]
